FAERS Safety Report 8956861 (Version 1)
Quarter: 2012Q4

REPORT INFORMATION
  Report Type: 
  Country: CN (occurrence: CN)
  Receive Date: 20121210
  Receipt Date: 20121210
  Transmission Date: 20130627
  Serious: Yes (Hospitalization)
  Sender: FDA-Public Use
  Company Number: CN-BAYER-2012-128880

PATIENT
  Age: 80 Year
  Sex: Male

DRUGS (1)
  1. BAYASPIRIN [Suspect]
     Indication: CORONARY STENT PLACEMENT
     Dosage: 0.1 g, QD
     Route: 048
     Dates: start: 20100227, end: 20100417

REACTIONS (3)
  - Abdominal distension [Recovered/Resolved]
  - Abdominal pain [Recovered/Resolved]
  - Melaena [Recovered/Resolved]
